FAERS Safety Report 7834509-5 (Version None)
Quarter: 2011Q4

REPORT INFORMATION
  Report Type: 
  Country: None (occurrence: None)
  Receive Date: 20111024
  Receipt Date: 20111012
  Transmission Date: 20120403
  Serious: Yes (Hospitalization)
  Sender: FDA-Public Use
  Company Number: JP-SANOFI-AVENTIS-2011SA068795

PATIENT
  Age: 90 Year
  Sex: Female

DRUGS (6)
  1. YOKUKAN-SAN [Concomitant]
     Route: 048
  2. ZOLPIDEM TARTRATE [Suspect]
     Route: 048
  3. ZOLPIDEM TARTRATE [Suspect]
     Dosage: DRUG GIVEN ON PRN BASIS (AS AND WHEN REQUIRED)
     Route: 065
  4. DONEPEZIL HCL [Concomitant]
     Route: 048
  5. HALOPERIDOL [Concomitant]
     Route: 048
  6. RISPERIDONE [Concomitant]
     Route: 048

REACTIONS (1)
  - DELIRIUM [None]
